FAERS Safety Report 12621339 (Version 1)
Quarter: 2016Q3

REPORT INFORMATION
  Report Type: Report from Study
  Country: US (occurrence: US)
  Receive Date: 20160804
  Receipt Date: 20160804
  Transmission Date: 20161109
  Serious: Yes (Life-Threatening)
  Sender: FDA-Public Use
  Company Number: US-ROCHE-758126

PATIENT
  Age: 61 Year
  Sex: Female
  Weight: 75.4 kg

DRUGS (3)
  1. VISMODEGIB [Suspect]
     Active Substance: VISMODEGIB
     Indication: MALIGNANT PERITONEAL NEOPLASM
     Dosage: FREQUENCY: DAILY?LAST DOSE PRIOR TO SAE: 10/JAN/2011?TOTAL DOSE (2250 MG)
     Route: 048
     Dates: start: 20110103, end: 20110117
  2. ERLOTINIB [Suspect]
     Active Substance: ERLOTINIB
     Indication: MALIGNANT PERITONEAL NEOPLASM
     Dosage: FREQUENCY: DAILY.?LAST DOSE PRIOR TO SAE: 10/JAN/2011?TOTAL DOSE (1125 MG)
     Route: 048
     Dates: start: 20110103, end: 20110117
  3. GEMCITABINE HYDROCHLORIDE. [Suspect]
     Active Substance: GEMCITABINE HYDROCHLORIDE
     Indication: MALIGNANT PERITONEAL NEOPLASM
     Dosage: 750 MG/M2 INTRAVENOUS OVER 30 MIN ON DAYS 1, 8, 15, 22, 29, 36 AND 43.
     Route: 042
     Dates: start: 20110103, end: 20110110

REACTIONS (1)
  - Platelet count decreased [Recovered/Resolved]

NARRATIVE: CASE EVENT DATE: 20110117
